FAERS Safety Report 5154925-2 (Version None)
Quarter: 2006Q4

REPORT INFORMATION
  Report Type: 
  Country: None (occurrence: None)
  Receive Date: 20061121
  Receipt Date: 20060830
  Transmission Date: 20070319
  Serious: Yes (Life-Threatening, Hospitalization, Other)
  Sender: FDA-Public Use
  Company Number: JP-BRISTOL-MYERS SQUIBB COMPANY-13499413

PATIENT
  Age: 35 Year
  Sex: Male

DRUGS (6)
  1. IFOMIDE [Suspect]
     Indication: PERITONEAL SARCOMA
     Route: 042
     Dates: start: 20060818, end: 20060818
  2. ADRIAMYCIN PFS [Suspect]
     Indication: SARCOMA
     Route: 041
     Dates: start: 20060816, end: 20060816
  3. UROMITEXAN [Concomitant]
     Route: 041
     Dates: start: 20060807, end: 20060811
  4. HAROSMIN S [Concomitant]
     Dates: start: 20060814
  5. MANNITOL [Concomitant]
     Dates: start: 20060814
  6. KYTRIL [Concomitant]
     Dates: start: 20060814

REACTIONS (10)
  - AGITATION [None]
  - CARDIAC ARREST [None]
  - CARDIO-RESPIRATORY ARREST [None]
  - ENCEPHALOPATHY [None]
  - FALL [None]
  - HEPATIC FUNCTION ABNORMAL [None]
  - LOSS OF CONSCIOUSNESS [None]
  - RENAL IMPAIRMENT [None]
  - RESPIRATORY DEPRESSION [None]
  - TREMOR [None]
